FAERS Safety Report 6258070 (Version 5)
Quarter: 2020Q3

REPORT INFORMATION
  Report Type: Report from Study
  Country: BR (occurrence: BR)
  Receive Date: 20070309
  Receipt Date: 20080310
  Transmission Date: 20201104
  Serious: Yes (Life-Threatening, Hospitalization, Other)
  Sender: FDA-Public Use
  Company Number: HQWYE256101MAR07

PATIENT
  Age: 60 Year
  Sex: Male
  Weight: 64.6 kg

DRUGS (2)
  1. ATENOLOL. [Concomitant]
     Active Substance: ATENOLOL
     Indication: HYPERTENSION
     Route: 048
     Dates: start: 20030527
  2. CYCLOSPORINE. [Suspect]
     Active Substance: CYCLOSPORINE
     Indication: PROPHYLAXIS AGAINST TRANSPLANT REJECTION
     Route: 048
     Dates: start: 20061122, end: 20070306

REACTIONS (1)
  - Hepatic cancer recurrent [Not Recovered/Not Resolved]

NARRATIVE: CASE EVENT DATE: 20070214
